FAERS Safety Report 22155215 (Version 1)
Quarter: 2023Q1

REPORT INFORMATION
  Report Type: Report from Study
  Country: JP (occurrence: JP)
  Receive Date: 20230330
  Receipt Date: 20230330
  Transmission Date: 20230418
  Serious: Yes (Other)
  Sender: FDA-Public Use
  Company Number: JP-Accord-305756

PATIENT
  Age: 61 Year
  Sex: Male

DRUGS (2)
  1. CISPLATIN [Suspect]
     Active Substance: CISPLATIN
     Indication: Squamous cell carcinoma
     Dosage: AVERAGE AND TOTAL DOSES OF CDDP WERE 84 AND 335 MG/BODY, RESPECTIVELY.
  2. SODIUM THIOSULFATE [Concomitant]
     Active Substance: SODIUM THIOSULFATE
     Dosage: INTRAVENOUSLY ADMINISTERED AT A DOSE OF 20 G/M2 TO NEUTRALIZE CDDP
     Route: 042

REACTIONS (2)
  - Blindness [Recovered/Resolved]
  - Eye pain [Recovered/Resolved]
